FAERS Safety Report 8739573 (Version 6)
Quarter: 2014Q4

REPORT INFORMATION
  Report Type: Report from Study
  Country: BR (occurrence: BR)
  Receive Date: 20120823
  Receipt Date: 20141105
  Transmission Date: 20150529
  Serious: Yes (Hospitalization)
  Sender: FDA-Public Use
  Company Number: BR-ROCHE-1016986

PATIENT
  Age: 36 Year
  Sex: Male
  Weight: 67.2 kg

DRUGS (17)
  1. LORATADINE. [Concomitant]
     Active Substance: LORATADINE
     Route: 065
     Dates: start: 20111206, end: 20111207
  2. METOCLOPRAMIDE. [Concomitant]
     Active Substance: METOCLOPRAMIDE
     Indication: VOMITING
     Route: 065
     Dates: start: 20111229, end: 20111231
  3. BENADRYL (BRAZIL) [Concomitant]
     Active Substance: DIPHENHYDRAMINE HYDROCHLORIDE
     Indication: TREMOR
     Route: 065
     Dates: start: 20111122, end: 20111122
  4. DIPYRONE [Concomitant]
     Active Substance: DIPYRONE
     Route: 065
     Dates: start: 20111122, end: 20111122
  5. TRASTUZUMAB EMTANSINE [Suspect]
     Active Substance: ADO-TRASTUZUMAB EMTANSINE
     Indication: BREAST CANCER METASTATIC
     Dosage: LAST DOSE PRIOR TO SAE WAS ON 01/MAR/2012?LAST DOSE PRIOR TO SAE ALT AND AST INCREASED WAS ON 22/NOV
     Route: 042
     Dates: start: 20111122
  6. DIPYRONE [Concomitant]
     Active Substance: DIPYRONE
     Indication: PAIN PROPHYLAXIS
     Route: 065
     Dates: start: 20111127, end: 20111128
  7. METOCLOPRAMIDE. [Concomitant]
     Active Substance: METOCLOPRAMIDE
     Indication: PAIN PROPHYLAXIS
     Route: 065
     Dates: start: 20111127, end: 20111128
  8. LISADOR [Concomitant]
     Active Substance: DIPYRONE\PROMETHAZINE HYDROCHLORIDE
     Indication: BACK PAIN
     Route: 065
     Dates: start: 20111229, end: 20111231
  9. LORATADINE. [Concomitant]
     Active Substance: LORATADINE
     Route: 065
     Dates: start: 20111207, end: 20111208
  10. HYDROCORTISONE. [Concomitant]
     Active Substance: HYDROCORTISONE
     Indication: TREMOR
     Route: 065
     Dates: start: 20111122, end: 20111122
  11. TRANEXAMIC ACID. [Concomitant]
     Active Substance: TRANEXAMIC ACID
     Indication: PRODUCT USED FOR UNKNOWN INDICATION
     Route: 065
     Dates: start: 20111127, end: 20111128
  12. DEXAMETHASONE. [Concomitant]
     Active Substance: DEXAMETHASONE
     Indication: PRODUCT USED FOR UNKNOWN INDICATION
     Route: 065
     Dates: start: 20111127, end: 20111128
  13. LACTULOSE. [Concomitant]
     Active Substance: LACTULOSE
     Indication: CONSTIPATION PROPHYLAXIS
     Route: 065
     Dates: start: 20111128, end: 20111130
  14. OMEPRAZOLE. [Concomitant]
     Active Substance: OMEPRAZOLE
     Indication: PROPHYLAXIS
     Route: 065
     Dates: start: 20111127, end: 20111130
  15. CODEINE [Concomitant]
     Active Substance: CODEINE
     Indication: CHEST PAIN
     Route: 065
     Dates: start: 201107, end: 20111031
  16. LORATADINE. [Concomitant]
     Active Substance: LORATADINE
     Indication: PRURITUS
     Route: 065
     Dates: start: 201110, end: 20111127
  17. PERTUZUMAB [Suspect]
     Active Substance: PERTUZUMAB
     Indication: BREAST CANCER METASTATIC
     Dosage: DATE OF LAST DOSE PRIOR TO SAE: 01/MAR/2012
     Route: 042
     Dates: start: 20111122

REACTIONS (3)
  - Aspartate aminotransferase increased [Recovered/Resolved]
  - Thrombocytopenia [Recovered/Resolved]
  - Alanine aminotransferase increased [Recovered/Resolved]

NARRATIVE: CASE EVENT DATE: 20111127
